FAERS Safety Report 15204755 (Version 16)
Quarter: 2022Q2

REPORT INFORMATION
  Report Type: Report from Study
  Country: US (occurrence: US)
  Receive Date: 20180726
  Receipt Date: 20220628
  Transmission Date: 20220721
  Serious: Yes (Hospitalization, Other)
  Sender: FDA-Public Use
  Company Number: US-SHIRE-US201826554

PATIENT
  Age: 52 Year
  Sex: Female
  Weight: 109 kg

DRUGS (52)
  1. HUMAN IMMUNOGLOBULIN G [Suspect]
     Active Substance: HUMAN IMMUNOGLOBULIN G
     Indication: Immunodeficiency common variable
     Dosage: 16 GRAM, 1/WEEK
     Route: 058
     Dates: start: 20170315
  2. HUMAN IMMUNOGLOBULIN G [Suspect]
     Active Substance: HUMAN IMMUNOGLOBULIN G
     Dosage: 16 GRAM, 1/WEEK
     Route: 065
     Dates: start: 20170322
  3. HUMAN IMMUNOGLOBULIN G [Suspect]
     Active Substance: HUMAN IMMUNOGLOBULIN G
     Dosage: 16 GRAM, 1/WEEK
     Route: 058
     Dates: start: 20170322
  4. ACETAMINOPHEN [Concomitant]
     Active Substance: ACETAMINOPHEN
     Route: 065
  5. DIPHENHYDRAMINE [Concomitant]
     Active Substance: DIPHENHYDRAMINE
  6. LIDOCAINE [Concomitant]
     Active Substance: LIDOCAINE
  7. EPINEPHRINE [Concomitant]
     Active Substance: EPINEPHRINE
  8. HALCION [Concomitant]
     Active Substance: TRIAZOLAM
  9. PROVENTIL [Concomitant]
     Active Substance: ALBUTEROL
  10. VALTREX [Concomitant]
     Active Substance: VALACYCLOVIR HYDROCHLORIDE
  11. ALBUTEROL [Concomitant]
     Active Substance: ALBUTEROL
  12. OFLOXACIN [Concomitant]
     Active Substance: OFLOXACIN
  13. DIFLUCAN [Concomitant]
     Active Substance: FLUCONAZOLE
  14. BIOTIN [Concomitant]
     Active Substance: BIOTIN
  15. KLONOPIN [Concomitant]
     Active Substance: CLONAZEPAM
  16. SINGULAIR [Concomitant]
     Active Substance: MONTELUKAST SODIUM
  17. DIOVAN [Concomitant]
     Active Substance: VALSARTAN
  18. METFORMIN [Concomitant]
     Active Substance: METFORMIN HYDROCHLORIDE
  19. FISH OIL [Concomitant]
     Active Substance: FISH OIL
  20. GABAPENTIN [Concomitant]
     Active Substance: GABAPENTIN
  21. MUPIROCIN [Concomitant]
     Active Substance: MUPIROCIN
  22. FLONASE [Concomitant]
     Active Substance: FLUTICASONE PROPIONATE
  23. ZOFRAN [Concomitant]
     Active Substance: ONDANSETRON HYDROCHLORIDE
  24. DICYCLOMINE HYDROCHLORIDE [Concomitant]
     Active Substance: DICYCLOMINE HYDROCHLORIDE
  25. VITAMIN C [Concomitant]
     Active Substance: ASCORBIC ACID
  26. MELATONIN [Concomitant]
     Active Substance: MELATONIN
  27. VALERIAN [Concomitant]
     Active Substance: VALERIAN
  28. AMBIEN [Concomitant]
     Active Substance: ZOLPIDEM TARTRATE
  29. PATADAY [Concomitant]
     Active Substance: OLOPATADINE HYDROCHLORIDE
  30. ACYCLOVIR [Concomitant]
     Active Substance: ACYCLOVIR
  31. BREO ELLIPTA [Concomitant]
     Active Substance: FLUTICASONE FUROATE\VILANTEROL TRIFENATATE
  32. VITAMIN B12 [Concomitant]
     Active Substance: CYANOCOBALAMIN
  33. PEPCID [Concomitant]
     Active Substance: FAMOTIDINE
  34. PAROXETINE [Concomitant]
     Active Substance: PAROXETINE
  35. VITAMIN D3 [Concomitant]
     Active Substance: CHOLECALCIFEROL
  36. ZINC [Concomitant]
     Active Substance: ZINC
  37. FLUTICASONE PROPIONATE [Concomitant]
     Active Substance: FLUTICASONE PROPIONATE
  38. LOSARTAN POTASSIUM [Concomitant]
     Active Substance: LOSARTAN POTASSIUM
  39. OMEPRAZOLE [Concomitant]
     Active Substance: OMEPRAZOLE
  40. MODERNA COVID-19 VACCINE [Concomitant]
     Active Substance: ELASOMERAN
  41. POTASSIUM [Concomitant]
     Active Substance: POTASSIUM
  42. VITAMIN B [Concomitant]
     Active Substance: VITAMIN B
  43. HERBALS [Concomitant]
     Active Substance: HERBALS
  44. PFIZER-BIONTECH COVID-19 VACCINE [Concomitant]
     Active Substance: TOZINAMERAN
  45. PAROXETINE HYDROCHLORIDE [Concomitant]
     Active Substance: PAROXETINE HYDROCHLORIDE
  46. FLUTICASONE PROPIONATE [Concomitant]
     Active Substance: FLUTICASONE PROPIONATE
  47. ALBUTEROL SULFATE [Concomitant]
     Active Substance: ALBUTEROL SULFATE
  48. METFORMIN HYDROCHLORIDE [Concomitant]
     Active Substance: METFORMIN HYDROCHLORIDE
     Route: 065
  49. OXYCODONE HYDROCHLORIDE [Concomitant]
     Active Substance: OXYCODONE HYDROCHLORIDE
     Route: 065
  50. PROAIR HFA [Concomitant]
     Active Substance: ALBUTEROL SULFATE
  51. KLONOPIN [Concomitant]
     Active Substance: CLONAZEPAM
  52. CARAFATE [Concomitant]
     Active Substance: SUCRALFATE

REACTIONS (31)
  - Pneumonia [Recovering/Resolving]
  - Knee operation [Unknown]
  - Sepsis [Unknown]
  - Pulmonary mass [Unknown]
  - Joint swelling [Unknown]
  - Pyrexia [Unknown]
  - Lumbar vertebral fracture [Unknown]
  - Knee arthroplasty [Unknown]
  - Medical device removal [Unknown]
  - Spinal compression fracture [Unknown]
  - Foot fracture [Unknown]
  - Stress [Unknown]
  - Arthropathy [Unknown]
  - Cystitis [Recovered/Resolved]
  - Fungal infection [Recovered/Resolved]
  - Bladder pain [Recovered/Resolved]
  - Pollakiuria [Recovered/Resolved]
  - Malaise [Recovering/Resolving]
  - Infusion site extravasation [Unknown]
  - Infusion site pruritus [Unknown]
  - Headache [Unknown]
  - Nausea [Unknown]
  - Seasonal allergy [Unknown]
  - Fall [Unknown]
  - Spinal fracture [Unknown]
  - Intervertebral disc protrusion [Unknown]
  - Oxygen saturation decreased [Unknown]
  - Infusion site pain [Unknown]
  - Gait inability [Recovering/Resolving]
  - COVID-19 [Unknown]
  - Gastrointestinal disorder [Unknown]

NARRATIVE: CASE EVENT DATE: 20180601
